FAERS Safety Report 8781150 (Version 1)
Quarter: 2012Q4

REPORT INFORMATION
  Report Type: Report from Study
  Country: US (occurrence: US)
  Receive Date: 20120913
  Receipt Date: 20120913
  Transmission Date: 20130627
  Serious: Yes (Hospitalization)
  Sender: FDA-Public Use
  Company Number: US-MERCK-1209USA002446

PATIENT

DRUGS (10)
  1. SYLATRON [Suspect]
     Indication: MALIGNANT MELANOMA
     Dosage: 3 Microgram per kilogram, qw (5th dose)
     Route: 042
     Dates: start: 20120731, end: 20120828
  2. YERVOY [Suspect]
     Indication: MALIGNANT MELANOMA
     Dosage: 3 mg/kg, q3w every 3 weeksX4 (second dose)
     Route: 042
     Dates: start: 20120731, end: 20120821
  3. SIMVASTATIN [Concomitant]
  4. METFORMIN [Concomitant]
  5. ASPIRIN [Concomitant]
  6. HYDROCHLOROTHIAZIDE [Concomitant]
  7. VITAMIN B (UNSPECIFIED) [Concomitant]
  8. CALCIUM (UNSPECIFIED) [Concomitant]
  9. VITAMINS (UNSPECIFIED) [Concomitant]
  10. OMEGA-3 [Concomitant]

REACTIONS (3)
  - Abdominal pain [Unknown]
  - Vomiting [Unknown]
  - Blood glucose increased [Unknown]
